FAERS Safety Report 9325451 (Version 1)
Quarter: 2013Q2

REPORT INFORMATION
  Report Type: Spontaneous
  Country: US (occurrence: None)
  Receive Date: 20130528
  Receipt Date: 20130528
  Transmission Date: 20140414
  Serious: Yes (Other)
  Sender: FDA-Public Use
  Company Number: AUR-APL-2013-04218

PATIENT
  Age: 51 Year
  Sex: Female
  Weight: 45 kg

DRUGS (23)
  1. ATENOLOL [Suspect]
     Indication: BLOOD PRESSURE
     Route: 048
     Dates: start: 2003
  2. LISINOPRIL (LISINOPRIL) [Suspect]
     Indication: BLOOD PRESSURE
     Route: 048
     Dates: start: 2009
  3. NEXIUM (ESOMEPRAZOLE MAGNESIUM) [Suspect]
     Indication: GASTROOESOPHAGEAL REFLUX DISEASE
     Route: 048
     Dates: start: 2008
  4. ALDACTONE (SPIRONOLACTONE) [Concomitant]
  5. PHENOBARBITAL (PHENOBARBITAL) [Concomitant]
  6. XANAX (ALPRAZOLAM) [Concomitant]
  7. POTASSIUM [Concomitant]
  8. TRAZODONE (TRAZODONE) [Concomitant]
  9. VIATMIN D3 (COLECALCIFEROL) [Concomitant]
  10. VITAMIN D (ERGOCALCIFEROL) [Concomitant]
  11. LOMOTIL (LOMOTIL) [Concomitant]
  12. THIAMINE (THIAMINE) [Concomitant]
  13. BONIVA (IBANDRONATE SODIUM) [Concomitant]
  14. VITAMIN B12 (CYANOCOBALAMIN) [Concomitant]
  15. ACETAMINOPHEN W/HYDROCODONE BITRATE (VICODIN) [Concomitant]
  16. LOVENOX (ENOXAPARIN SODIUM) [Concomitant]
  17. VITAMIN C [Concomitant]
  18. DOXYCYCLINE (DOXYCYCLINE) [Concomitant]
  19. FUROSEMIDE (FUROSEMIDE) [Concomitant]
  20. VITAMINS [Concomitant]
  21. FOLIC ACID (FOLIC ACID) [Concomitant]
  22. ZOFRAN ODT (ONDANSETRON) [Concomitant]
  23. ACIPHEX (RABEPRAZOLE SODIUM) [Concomitant]

REACTIONS (78)
  - Drug hypersensitivity [None]
  - Road traffic accident [None]
  - Headache [None]
  - Hypertension [None]
  - Disturbance in attention [None]
  - Myocardial infarction [None]
  - Blood magnesium decreased [None]
  - Cardiac failure congestive [None]
  - Gastrooesophageal reflux disease [None]
  - Disease recurrence [None]
  - Ehlers-Danlos syndrome [None]
  - Blood alkaline phosphatase increased [None]
  - Compression fracture [None]
  - Multiple fractures [None]
  - Anaemia [None]
  - Malnutrition [None]
  - Leukopenia [None]
  - Postoperative wound infection [None]
  - Deep vein thrombosis [None]
  - Staphylococcal infection [None]
  - Fall [None]
  - Humerus fracture [None]
  - Alcoholism [None]
  - Loss of consciousness [None]
  - Facial pain [None]
  - Spinal osteoarthritis [None]
  - Pain [None]
  - Mental disorder [None]
  - Drug abuse [None]
  - Bronchitis [None]
  - Weight decreased [None]
  - Arthralgia [None]
  - Arthralgia [None]
  - Abdominal hernia [None]
  - Musculoskeletal chest pain [None]
  - Cellulitis staphylococcal [None]
  - Stress urinary incontinence [None]
  - Supraventricular tachycardia [None]
  - Ventricular extrasystoles [None]
  - Incisional hernia [None]
  - Electrocardiogram abnormal [None]
  - Long QT syndrome [None]
  - Cystitis [None]
  - Joint dislocation [None]
  - Rectocele [None]
  - Cervical spinal stenosis [None]
  - Cardiomegaly [None]
  - Jaw fracture [None]
  - Hyperparathyroidism [None]
  - Osteoporosis [None]
  - Raynaud^s phenomenon [None]
  - Glaucoma [None]
  - Bipolar disorder [None]
  - Essential hypertension [None]
  - Embolism [None]
  - Inguinal hernia [None]
  - Umbilical hernia [None]
  - Femoral neck fracture [None]
  - Pancreatitis acute [None]
  - Myelopathy [None]
  - Dysphagia [None]
  - Dyspepsia [None]
  - Prinzmetal angina [None]
  - Antiphospholipid syndrome [None]
  - Haematochezia [None]
  - Chills [None]
  - Anxiety [None]
  - Mitral valve prolapse [None]
  - Hyperlipidaemia [None]
  - Urticaria [None]
  - Nausea [None]
  - Vomiting [None]
  - Abortion spontaneous [None]
  - Stillbirth [None]
  - Multiple pregnancy [None]
  - Exposure during pregnancy [None]
  - Liver function test abnormal [None]
  - Coeliac disease [None]
